FAERS Safety Report 25785912 (Version 1)
Quarter: 2025Q3

REPORT INFORMATION
  Report Type: Spontaneous
  Country: EU (occurrence: EU)
  Receive Date: 20250910
  Receipt Date: 20250910
  Transmission Date: 20251020
  Serious: Yes (Other)
  Sender: ENDO
  Company Number: EU-ENDO USA, INC.-2025-001840

PATIENT
  Age: 38 Year
  Sex: Male
  Weight: 110 kg

DRUGS (3)
  1. AVEED [Suspect]
     Active Substance: TESTOSTERONE UNDECANOATE
     Indication: Weight decreased
     Route: 030
     Dates: start: 202302
  2. BOLDENONE [Suspect]
     Active Substance: BOLDENONE
     Indication: Product used for unknown indication
     Route: 030
     Dates: start: 202308
  3. TRENBOLONE [Concomitant]
     Active Substance: TRENBOLONE
     Indication: Weight decreased
     Route: 065
     Dates: start: 202405, end: 202407

REACTIONS (10)
  - Ejection fraction decreased [Not Recovered/Not Resolved]
  - Dependence [Not Recovered/Not Resolved]
  - Polycythaemia [Not Recovered/Not Resolved]
  - Hypertension [Not Recovered/Not Resolved]
  - Sleep disorder [Not Recovered/Not Resolved]
  - Aggression [Not Recovered/Not Resolved]
  - Libido increased [Not Recovered/Not Resolved]
  - Acne [Recovered/Resolved]
  - Incorrect dose administered [Unknown]
  - Inappropriate schedule of product administration [Unknown]

NARRATIVE: CASE EVENT DATE: 20230101
